FAERS Safety Report 9822428 (Version 2)
Quarter: 2014Q2

REPORT INFORMATION
  Report Type: Report from Study
  Country: GB (occurrence: GB)
  Receive Date: 20140116
  Receipt Date: 20140402
  Transmission Date: 20141212
  Serious: Yes (Hospitalization)
  Sender: FDA-Public Use
  Company Number: GB-MERCK-1401GBR004865

PATIENT
  Age: 68 Year
  Sex: Male
  Weight: 74.2 kg

DRUGS (4)
  1. VORINOSTAT [Suspect]
     Dosage: LAST DOSE 300 MG, BID(CYCLE 1)
     Route: 048
     Dates: start: 20131118, end: 20131126
  2. VORINOSTAT [Suspect]
     Dosage: LAST DOSE 300 MG (CYCLE 2), BID
     Route: 048
     Dates: start: 2013, end: 20131224
  3. AZACITIDINE [Suspect]
     Dosage: LAST DOSE 143 MG, QD(CYCLE 1)
     Route: 058
     Dates: start: 20131118
  4. AZACITIDINE [Suspect]
     Dosage: LAST DOSE 140 MG, QD(CYCLE 2)
     Route: 058
     Dates: start: 2013, end: 20131224

REACTIONS (3)
  - Device related infection [Recovered/Resolved]
  - Vomiting [Recovered/Resolved]
  - Influenza like illness [Recovered/Resolved]
